FAERS Safety Report 4812434-1 (Version None)
Quarter: 2005Q4

REPORT INFORMATION
  Report Type: 
  Country: None (occurrence: None)
  Receive Date: 20051028
  Receipt Date: 20050128
  Transmission Date: 20060501
  Serious: No
  Sender: FDA-Public Use
  Company Number: US-GLAXOSMITHKLINE-A0542831A

PATIENT
  Age: 72 Year
  Sex: Female

DRUGS (17)
  1. ADVAIR DISKUS 100/50 [Suspect]
     Indication: CHRONIC OBSTRUCTIVE PULMONARY DISEASE
     Dosage: 1PUFF TWICE PER DAY
     Route: 055
  2. ALBUTEROL [Concomitant]
  3. REMICADE [Concomitant]
  4. PREDNISONE [Concomitant]
  5. FORTEO [Concomitant]
  6. PROTONIX [Concomitant]
  7. XANAX [Concomitant]
  8. ZANTAC [Concomitant]
  9. FOLIC ACID [Concomitant]
  10. LANOXICAPS [Concomitant]
  11. COZAAR [Concomitant]
  12. LASIX [Concomitant]
  13. AMARYL [Concomitant]
  14. ACTOS [Concomitant]
  15. METFORMIN HCL [Concomitant]
  16. COUMADIN [Concomitant]
  17. LESCOL [Concomitant]

REACTIONS (1)
  - CANDIDIASIS [None]
